FAERS Safety Report 4471055-3 (Version None)
Quarter: 2004Q4

REPORT INFORMATION
  Report Type: 
  Country: None (occurrence: None)
  Receive Date: 20041011
  Receipt Date: 20040929
  Transmission Date: 20050328
  Serious: Yes (Other)
  Sender: FDA-Public Use
  Company Number: PHFR2004GB03675

PATIENT

DRUGS (1)
  1. NEORAL [Suspect]
     Route: 065

REACTIONS (2)
  - ADIPOSIS DOLOROSA [None]
  - LIPOMA [None]
